FAERS Safety Report 5685056-0 (Version None)
Quarter: 2008Q1

REPORT INFORMATION
  Report Type: 
  Country: None (occurrence: None)
  Receive Date: 20080328
  Receipt Date: 20000223
  Transmission Date: 20080703
  Serious: Yes (Death)
  Sender: FDA-Public Use
  Company Number: US-ROCHE-225465

PATIENT
  Age: 80 Year
  Sex: Female

DRUGS (9)
  1. XELODA [Suspect]
     Indication: BREAST CANCER
     Route: 048
     Dates: start: 19990801
  2. ADVIL [Concomitant]
     Route: 048
  3. LANOXIN [Concomitant]
     Indication: ATRIAL FIBRILLATION
     Route: 048
  4. LASIX [Concomitant]
     Route: 048
  5. AREDIA [Concomitant]
     Indication: BREAST CANCER
     Route: 042
  6. OXYCONTIN [Concomitant]
     Route: 048
  7. POTASSIUM CHLORIDE [Concomitant]
     Route: 048
  8. VIT B-6 [Concomitant]
     Route: 048
  9. CALCIUM [Concomitant]
     Route: 048

REACTIONS (4)
  - CONJUNCTIVITIS [None]
  - DISEASE PROGRESSION [None]
  - LACRIMATION INCREASED [None]
  - PALMAR-PLANTAR ERYTHRODYSAESTHESIA SYNDROME [None]
